FAERS Safety Report 5390462-8 (Version None)
Quarter: 2007Q3

REPORT INFORMATION
  Report Type: 
  Country: None (occurrence: None)
  Receive Date: 20070718
  Receipt Date: 20061031
  Transmission Date: 20080115
  Serious: No
  Sender: FDA-Public Use
  Company Number: US-KINGPHARMUSA00001-K200601368

PATIENT

DRUGS (9)
  1. LEVOXYL [Suspect]
     Indication: HYPOTHYROIDISM
     Dosage: 25 MCG, QD
     Route: 048
     Dates: start: 20051205, end: 20060101
  2. LEVOXYL [Suspect]
     Dosage: UNK MCG, QD
     Route: 048
     Dates: start: 20060101, end: 20060101
  3. LEVOXYL [Suspect]
     Dosage: 125 MCG, QD
     Route: 048
     Dates: start: 20060101
  4. VITAMIN A   /00056001/ [Concomitant]
     Dosage: UNK, QD
     Route: 048
  5. VITAMIN D                          /00107901/ [Concomitant]
     Dosage: UNK, QD
     Route: 048
  6. VITAMIN E                          /00110501/ [Concomitant]
     Dosage: UNK, QD
     Route: 048
  7. ZINC CITRATE [Concomitant]
     Dosage: UNK, QD
     Route: 048
  8. SELENIUM SULFIDE [Concomitant]
     Dosage: UNK, QD
     Route: 048
  9. 3 AYURVEDIC INGREDIENTS [Concomitant]

REACTIONS (6)
  - CONSTIPATION [None]
  - DRY EYE [None]
  - DRY SKIN [None]
  - DYSPHONIA [None]
  - FATIGUE [None]
  - TINNITUS [None]
